FAERS Safety Report 15568305 (Version 3)
Quarter: 2019Q4

REPORT INFORMATION
  Report Type: Report from Study
  Country: US (occurrence: US)
  Receive Date: 20181031
  Receipt Date: 20191017
  Transmission Date: 20200122
  Serious: Yes (Other)
  Sender: FDA-Public Use
  Company Number: US-ROCHE-2207179

PATIENT
  Age: 62 Year
  Sex: Female
  Weight: 61.3 kg

DRUGS (2)
  1. LENALIDOMIDE [Suspect]
     Active Substance: LENALIDOMIDE
     Indication: B-CELL LYMPHOMA
     Dosage: FOR 21 DAYS
     Route: 048
     Dates: start: 20180705, end: 20180917
  2. OBINUTUZUMAB. [Suspect]
     Active Substance: OBINUTUZUMAB
     Indication: B-CELL LYMPHOMA
     Dosage: FLAT DOSE
     Route: 042
     Dates: start: 20180705, end: 20180828

REACTIONS (1)
  - Endometrial adenocarcinoma [Recovered/Resolved]

NARRATIVE: CASE EVENT DATE: 20181009
